FAERS Safety Report 7440763-4 (Version None)
Quarter: 2011Q2

REPORT INFORMATION
  Report Type: 
  Country: None (occurrence: None)
  Receive Date: 20110427
  Receipt Date: 20110421
  Transmission Date: 20111010
  Serious: Yes (Other)
  Sender: FDA-Public Use
  Company Number: IE-PFIZER INC-2011087053

PATIENT
  Sex: Female

DRUGS (3)
  1. TOVIAZ [Suspect]
     Dosage: 4 MG, UNK
  2. MICARDIS HCT [Concomitant]
     Dosage: 80 MG, UNK
  3. ISTIN [Concomitant]
     Dosage: 5 MG, UNK

REACTIONS (7)
  - SLEEP DISORDER [None]
  - SHOCK [None]
  - EPISTAXIS [None]
  - DRY THROAT [None]
  - OROPHARYNGEAL PAIN [None]
  - RHINORRHOEA [None]
  - MYOCARDIAL INFARCTION [None]
